FAERS Safety Report 6238184-5 (Version None)
Quarter: 2009Q2

REPORT INFORMATION
  Report Type: 
  Country: None (occurrence: None)
  Receive Date: 20090617
  Receipt Date: 20090617
  Transmission Date: 20091009
  Serious: Yes (Hospitalization)
  Sender: FDA-Public Use
  Company Number: None

PATIENT
  Sex: Female
  Weight: 107 kg

DRUGS (1)
  1. ETHINYL ESTRDIOL -APRI- APRI [Suspect]
     Indication: OVARIAN CYST
     Dosage: 1 TABLET DAILY PO OVER A YEAR
     Route: 048

REACTIONS (2)
  - DYSPNOEA [None]
  - HEADACHE [None]
